FAERS Safety Report 9153346 (Version 1)
Quarter: 2013Q1

REPORT INFORMATION
  Report Type: Spontaneous
  Country: DK (occurrence: None)
  Receive Date: 20130204
  Receipt Date: 20130204
  Transmission Date: 20140127
  Serious: Yes (Hospitalization, Other)
  Sender: FDA-Public Use
  Company Number: 2013MA000807

PATIENT
  Age: 85 Year
  Sex: Female

DRUGS (2)
  1. CITALOPRAM HYDROBROMIDE [Suspect]
     Indication: DEPRESSION
     Route: 048
     Dates: end: 20130111
  2. OMEPRAZOLE [Concomitant]

REACTIONS (3)
  - Hyponatraemia [None]
  - Confusional state [None]
  - Lethargy [None]
